FAERS Safety Report 22322112 (Version 1)
Quarter: 2023Q2

REPORT INFORMATION
  Report Type: Spontaneous
  Country: US (occurrence: None)
  Receive Date: 20230516
  Receipt Date: 20230516
  Transmission Date: 20230721
  Serious: No
  Sender: FDA-Public Use
  Company Number: US-Hikma Pharmaceuticals USA Inc.-US-H14001-22-02886

PATIENT
  Sex: Male

DRUGS (6)
  1. PREDNISONE [Suspect]
     Active Substance: PREDNISONE
     Indication: Unevaluable therapy
     Dosage: UNKNOWN
     Route: 065
  2. NURTEC ODT [Suspect]
     Active Substance: RIMEGEPANT SULFATE
     Indication: Vestibular migraine
     Dosage: UNKNOWN
     Route: 065
  3. BOTOX [Suspect]
     Active Substance: ONABOTULINUMTOXINA
     Indication: Product used for unknown indication
     Dosage: UNKNOWN
     Route: 065
  4. BOTOX [Suspect]
     Active Substance: ONABOTULINUMTOXINA
     Dosage: UNKNOWN
     Route: 065
  5. UBRELVY [Suspect]
     Active Substance: UBROGEPANT
     Indication: Product used for unknown indication
     Dosage: UNKNOWN
     Route: 065
  6. UBRELVY [Suspect]
     Active Substance: UBROGEPANT
     Dosage: UNKNOWN
     Route: 065

REACTIONS (5)
  - Thinking abnormal [Unknown]
  - Migraine [Unknown]
  - Dizziness [Unknown]
  - Off label use [Unknown]
  - Drug ineffective [Unknown]
